FAERS Safety Report 4724466-2 (Version None)
Quarter: 2005Q3

REPORT INFORMATION
  Report Type: 
  Country: None (occurrence: None)
  Receive Date: 20050726
  Receipt Date: 20050718
  Transmission Date: 20060218
  Serious: Yes (Hospitalization)
  Sender: FDA-Public Use
  Company Number: 2005SE04179

PATIENT
  Age: 22234 Day
  Sex: Female
  Weight: 72 kg

DRUGS (1)
  1. TAMOXIFEN CITRATE [Suspect]
     Indication: BREAST CANCER
     Route: 048
     Dates: start: 20020521

REACTIONS (3)
  - LIMB OPERATION [None]
  - TENOSYNOVITIS [None]
  - TENOSYNOVITIS STENOSANS [None]
